FAERS Safety Report 9478493 (Version 2)
Quarter: 2013Q4

REPORT INFORMATION
  Report Type: Spontaneous
  Country: US (occurrence: US)
  Receive Date: 20130827
  Receipt Date: 20131114
  Transmission Date: 20140711
  Serious: Yes (Hospitalization, Other)
  Sender: FDA-Public Use
  Company Number: US-FRI-1000047984

PATIENT
  Age: 59 Year
  Sex: Female
  Weight: 92 kg

DRUGS (12)
  1. ESCITALOPRAM [Suspect]
     Indication: DEPRESSION
     Dosage: 20 MG
     Route: 048
     Dates: start: 2004
  2. ESCITALOPRAM [Suspect]
     Dosage: 40 MG
     Route: 048
  3. ESCITALOPRAM [Suspect]
     Dosage: 20 MG
     Route: 048
     Dates: start: 201308
  4. LEVOTHYROXINE [Concomitant]
     Dosage: 50 MCG
  5. INSULIN [Concomitant]
     Indication: DIABETES MELLITUS
  6. SIMVASTATIN [Concomitant]
     Dosage: 20 MG
  7. OMEPRAZOLE [Concomitant]
     Dosage: 20 MG
  8. DIAZEPAM [Concomitant]
     Dosage: 10 MG
  9. OXYCONTIN [Concomitant]
     Dosage: 120 MG
  10. PHENERGAN [Concomitant]
     Indication: NAUSEA
  11. LASIX [Concomitant]
     Dosage: 40 MG
  12. POTASSIUM [Concomitant]
     Dosage: 20 MEQ

REACTIONS (5)
  - Appendicectomy [Unknown]
  - Knee arthroplasty [Unknown]
  - Drug ineffective [Not Recovered/Not Resolved]
  - Depression [Not Recovered/Not Resolved]
  - Prescribed overdose [Recovered/Resolved]
